FAERS Safety Report 10494504 (Version 1)
Quarter: 2014Q4

REPORT INFORMATION
  Report Type: Spontaneous
  Country: FR (occurrence: None)
  Receive Date: 20141001
  Receipt Date: 20141001
  Transmission Date: 20150528
  Serious: Yes (Other)
  Sender: FDA-Public Use
  Company Number: NGX_02580_2014

PATIENT
  Age: 52 Year
  Sex: Female
  Weight: 101 kg

DRUGS (5)
  1. QUTENZA [Suspect]
     Active Substance: CAPSAICIN
     Indication: NEURALGIA
     Dosage: 1 DF [CUTANEOUS PATCH] TRANSDERMAL
     Dates: start: 20140616, end: 20140616
  2. TAMOXIFENE [Concomitant]
     Active Substance: TAMOXIFEN
  3. PARACETAMOL [Concomitant]
     Active Substance: ACETAMINOPHEN
  4. SEROPLEX [Concomitant]
     Active Substance: ESCITALOPRAM OXALATE
  5. NEUROTIN [Concomitant]

REACTIONS (12)
  - Lymphangitis [None]
  - Inflammation [None]
  - Dermatitis bullous [None]
  - Fistula [None]
  - Application site vesicles [None]
  - Hyperthermia [None]
  - Abdominal distension [None]
  - Subcutaneous abscess [None]
  - Migraine [None]
  - Application site erythema [None]
  - Malaise [None]
  - Discomfort [None]

NARRATIVE: CASE EVENT DATE: 20140616
